FAERS Safety Report 10014217 (Version 1)
Quarter: 2014Q1

REPORT INFORMATION
  Report Type: Report from Study
  Country: CA (occurrence: CA)
  Receive Date: 20140317
  Receipt Date: 20140317
  Transmission Date: 20141002
  Serious: Yes (Other)
  Sender: FDA-Public Use
  Company Number: CA-ROCHE-1187985

PATIENT
  Age: 75 Year
  Sex: 0

DRUGS (1)
  1. XELODA [Suspect]
     Indication: COLORECTAL CANCER
     Route: 065
     Dates: start: 20120410, end: 20120810

REACTIONS (3)
  - Renal failure [Unknown]
  - Diarrhoea [Unknown]
  - Fatigue [Unknown]
